FAERS Safety Report 9551928 (Version 4)
Quarter: 2014Q1

REPORT INFORMATION
  Report Type: Report from Study
  Country: DE (occurrence: DE)
  Receive Date: 20130925
  Receipt Date: 20140313
  Transmission Date: 20141002
  Serious: Yes (Hospitalization, Other)
  Sender: FDA-Public Use
  Company Number: DE-JNJFOC-20111011622

PATIENT
  Age: 9 Year
  Sex: Female
  Weight: 38 kg

DRUGS (11)
  1. GOLIMUMAB [Suspect]
     Indication: JUVENILE IDIOPATHIC ARTHRITIS
     Route: 058
     Dates: start: 20111011
  2. GOLIMUMAB [Suspect]
     Indication: JUVENILE IDIOPATHIC ARTHRITIS
     Route: 058
     Dates: start: 20111110
  3. GOLIMUMAB [Suspect]
     Indication: JUVENILE IDIOPATHIC ARTHRITIS
     Route: 058
     Dates: start: 20110224
  4. METHOTREXAT [Suspect]
     Indication: JUVENILE IDIOPATHIC ARTHRITIS
     Dates: start: 20100615
  5. ONDANSETRON [Concomitant]
     Route: 048
     Dates: start: 20110809
  6. ONDANSETRON [Concomitant]
     Route: 048
     Dates: start: 20110225, end: 20110808
  7. ESOMEPRAZOL [Concomitant]
     Route: 048
     Dates: start: 20110206, end: 20120423
  8. ESOMEPRAZOL [Concomitant]
     Route: 048
     Dates: start: 20120423, end: 20120608
  9. NAPROXEN [Concomitant]
     Route: 048
     Dates: start: 20100615, end: 20120104
  10. NAPROXEN [Concomitant]
     Route: 048
     Dates: start: 20120423, end: 20120608
  11. FOLIC ACID [Concomitant]
     Route: 048
     Dates: start: 20080215

REACTIONS (1)
  - Pyelonephritis [Recovered/Resolved]
